FAERS Safety Report 8032832-5 (Version None)
Quarter: 2012Q1

REPORT INFORMATION
  Report Type: 
  Country: None (occurrence: None)
  Receive Date: 20120110
  Receipt Date: 20111230
  Transmission Date: 20120608
  Serious: Yes (Hospitalization)
  Sender: FDA-Public Use
  Company Number: FR-BAXTER-2012BH000471

PATIENT
  Age: 25 Month
  Sex: Male
  Weight: 10 kg

DRUGS (7)
  1. ETOPOSIDE [Suspect]
     Indication: NEPHROBLASTOMA
     Route: 042
     Dates: start: 20111107, end: 20111108
  2. VOGALENE [Concomitant]
     Indication: PRODUCT USED FOR UNKNOWN INDICATION
     Route: 042
  3. CARBOPLATIN [Suspect]
     Indication: NEPHROBLASTOMA
     Route: 042
     Dates: start: 20111107, end: 20111108
  4. ACETAMINOPHEN [Concomitant]
     Indication: PAIN
     Route: 042
  5. NALBUPHINE [Concomitant]
     Indication: PAIN
     Route: 042
  6. ACEBUTOLOL [Concomitant]
     Indication: HYPERTENSION
     Route: 048
     Dates: start: 20100101
  7. IFOSFAMIDE [Suspect]
     Indication: NEPHROBLASTOMA
     Route: 042
     Dates: start: 20111107, end: 20111108

REACTIONS (9)
  - PYRAMIDAL TRACT SYNDROME [None]
  - ENCEPHALOPATHY [None]
  - PNEUMONIA ASPIRATION [None]
  - VOMITING [None]
  - GRAND MAL CONVULSION [None]
  - LOSS OF CONSCIOUSNESS [None]
  - HYPOTONIA [None]
  - STATUS EPILEPTICUS [None]
  - DRUG INEFFECTIVE [None]
